FAERS Safety Report 9788970 (Version 1)
Quarter: 2013Q4

REPORT INFORMATION
  Report Type: Spontaneous
  Country: US (occurrence: US)
  Receive Date: 20131230
  Receipt Date: 20131230
  Transmission Date: 20140711
  Serious: No
  Sender: FDA-Public Use
  Company Number: US-ASTRAZENECA-2013SE76965

PATIENT
  Age: 62 Year
  Sex: Female

DRUGS (2)
  1. BRILINTA [Suspect]
     Route: 048
  2. RANEXA [Suspect]
     Route: 065

REACTIONS (1)
  - Dysgeusia [Not Recovered/Not Resolved]
